FAERS Safety Report 21300593 (Version 1)
Quarter: 2022Q3

REPORT INFORMATION
  Report Type: Report from Study
  Country: DE (occurrence: DE)
  Receive Date: 20220907
  Receipt Date: 20220907
  Transmission Date: 20221026
  Serious: Yes (Other)
  Sender: FDA-Public Use
  Company Number: DE-SUN PHARMACEUTICAL INDUSTRIES LTD-2022RR-353214

PATIENT
  Age: 79 Year
  Sex: Female
  Weight: 60 kg

DRUGS (10)
  1. SONIDEGIB [Suspect]
     Active Substance: SONIDEGIB
     Indication: Basal cell carcinoma
     Dosage: 200 MILLIGRAM, DAILY
     Route: 048
  2. LEVOTHYROXINE [Concomitant]
     Active Substance: LEVOTHYROXINE
     Indication: Pre-existing disease
     Dosage: 50 MILLIGRAM, DAILY
     Route: 048
  3. METFORMIN\SITAGLIPTIN [Concomitant]
     Active Substance: METFORMIN\SITAGLIPTIN
     Indication: Pre-existing disease
     Dosage: 1000 MILLIGRAM, BID
     Route: 048
  4. BISOPROLOL FUMARATE [Concomitant]
     Active Substance: BISOPROLOL FUMARATE
     Indication: Pre-existing disease
     Dosage: 7.5 MILLIGRAM, DAILY
     Route: 048
  5. Novodigal [Concomitant]
     Indication: Pre-existing disease
     Dosage: 0.2 MILLIGRAM, DAILY
     Route: 048
  6. AMLODIPINE BESYLATE\OLMESARTAN MEDOXOMIL [Concomitant]
     Active Substance: AMLODIPINE BESYLATE\OLMESARTAN MEDOXOMIL
     Indication: Pre-existing disease
     Dosage: 20 MILLIGRAM, DAILY
     Route: 048
  7. PIRETANIDE [Concomitant]
     Active Substance: PIRETANIDE
     Indication: Pre-existing disease
     Dosage: 6 MILLIGRAM, UNK
     Route: 048
  8. Allopurinol AL [Concomitant]
     Indication: Pre-existing disease
     Dosage: 100 MILLIGRAM, DAILY
     Route: 048
  9. ATORVASTATIN [Concomitant]
     Active Substance: ATORVASTATIN
     Indication: Pre-existing disease
     Dosage: 40 MILLIGRAM, DAILY
     Route: 048
  10. MARCUMAR [Concomitant]
     Active Substance: PHENPROCOUMON
     Indication: Pre-existing disease
     Dosage: DOSE AS REQUIRED, DAILY
     Route: 048

REACTIONS (1)
  - Neoplasm progression [Not Recovered/Not Resolved]

NARRATIVE: CASE EVENT DATE: 20220517
